FAERS Safety Report 8304512-X (Version None)
Quarter: 2012Q2

REPORT INFORMATION
  Report Type: 
  Country: None (occurrence: None)
  Receive Date: 20120423
  Receipt Date: 20120412
  Transmission Date: 20120825
  Serious: Yes (Other)
  Sender: FDA-Public Use
  Company Number: US-GLAXOSMITHKLINE-A0848897A

PATIENT
  Age: 82 Year
  Sex: Female

DRUGS (5)
  1. VITAMIN D [Concomitant]
  2. ALBUTEROL [Suspect]
     Indication: PRODUCT USED FOR UNKNOWN INDICATION
     Route: 055
  3. SYNTHROID [Concomitant]
  4. FLOVENT [Suspect]
     Indication: ASTHMA
     Dosage: 2PUFF TWICE PER DAY
     Route: 055
     Dates: start: 20091101
  5. FLONASE [Suspect]
     Indication: PRODUCT USED FOR UNKNOWN INDICATION
     Route: 045

REACTIONS (8)
  - FEELING JITTERY [None]
  - DYSPHONIA [None]
  - ERYTHEMA [None]
  - LACRIMATION INCREASED [None]
  - CANDIDIASIS [None]
  - PULMONARY CONGESTION [None]
  - PRURITUS GENERALISED [None]
  - EYE PRURITUS [None]
